FAERS Safety Report 19680067 (Version 1)
Quarter: 2021Q3

REPORT INFORMATION
  Report Type: Spontaneous
  Country: US (occurrence: US)
  Receive Date: 20210807
  Receipt Date: 20210807
  Transmission Date: 20211014
  Serious: No
  Sender: FDA-Public Use
  Company Number: None

PATIENT
  Sex: Female
  Weight: 49.5 kg

DRUGS (1)
  1. HCG [Suspect]
     Active Substance: GONADOTROPHIN, CHORIONIC

REACTIONS (1)
  - Insomnia [None]
